FAERS Safety Report 8320903-5 (Version None)
Quarter: 2012Q2

REPORT INFORMATION
  Report Type: 
  Country: None (occurrence: None)
  Receive Date: 20120430
  Receipt Date: 20120423
  Transmission Date: 20120825
  Serious: Yes (Other)
  Sender: FDA-Public Use
  Company Number: PHHY2012MX035733

PATIENT
  Sex: Female

DRUGS (1)
  1. ZOLEDRONOC ACID [Suspect]
     Indication: OSTEOPOROSIS
     Dosage: 5 MG/ 100 ML ONCE A YEAR.
     Route: 042
     Dates: start: 20111010

REACTIONS (5)
  - OPEN WOUND [None]
  - SKELETAL INJURY [None]
  - HEAD INJURY [None]
  - FALL [None]
  - LOSS OF CONSCIOUSNESS [None]
